FAERS Safety Report 6104683-X (Version None)
Quarter: 2009Q1

REPORT INFORMATION
  Report Type: 
  Country: None (occurrence: None)
  Receive Date: 20090303
  Receipt Date: 20090224
  Transmission Date: 20090719
  Serious: Yes (Hospitalization, Other)
  Sender: FDA-Public Use
  Company Number: 2009AL001107

PATIENT
  Age: 9 Year
  Sex: Male
  Weight: 31.2 kg

DRUGS (1)
  1. SERTRALINE HYDROCHLORIDE [Suspect]
     Dosage: 50 MG; X1; PO
     Route: 048

REACTIONS (9)
  - ABDOMINAL PAIN UPPER [None]
  - BLOOD CREATINE PHOSPHOKINASE INCREASED [None]
  - BLOOD UREA INCREASED [None]
  - ENCEPHALOPATHY [None]
  - LYMPHOCYTE PERCENTAGE DECREASED [None]
  - NEUTROPHIL PERCENTAGE INCREASED [None]
  - PCO2 INCREASED [None]
  - SEROTONIN SYNDROME [None]
  - WHITE BLOOD CELL COUNT INCREASED [None]
